FAERS Safety Report 6529587-X (Version None)
Quarter: 2010Q1

REPORT INFORMATION
  Report Type: 
  Country: None (occurrence: None)
  Receive Date: 20100104
  Receipt Date: 20091222
  Transmission Date: 20100710
  Serious: Yes (Hospitalization)
  Sender: FDA-Public Use
  Company Number: WAES 0912CHN00046

PATIENT
  Age: 47 Year
  Sex: Male

DRUGS (2)
  1. JANUVIA [Suspect]
     Indication: TYPE 2 DIABETES MELLITUS
     Dosage: 100 MG/DAILY PO
     Route: 048
     Dates: start: 20090805
  2. GLUCOPHAGE [Suspect]
     Indication: TYPE 2 DIABETES MELLITUS
     Dosage: 850 MG/BID PO
     Route: 048
     Dates: start: 20090527

REACTIONS (1)
  - IIIRD NERVE PARALYSIS [None]
